FAERS Safety Report 19229816 (Version 3)
Quarter: 2023Q2

REPORT INFORMATION
  Report Type: Spontaneous
  Country: US (occurrence: US)
  Receive Date: 20210506
  Receipt Date: 20230511
  Transmission Date: 20230721
  Serious: No
  Sender: FDA-Public Use
  Company Number: US-ORGANON-O2104USA001958

PATIENT
  Age: 63 Year
  Sex: Female

DRUGS (3)
  1. DULERA [Suspect]
     Active Substance: FORMOTEROL FUMARATE DIHYDRATE\MOMETASONE FUROATE
     Dosage: 2 PUFFS ONCE DAILY
     Route: 055
     Dates: start: 202012, end: 202103
  2. DULERA [Suspect]
     Active Substance: FORMOTEROL FUMARATE DIHYDRATE\MOMETASONE FUROATE
     Dosage: UNK
     Dates: start: 202103
  3. DULERA [Suspect]
     Active Substance: FORMOTEROL FUMARATE DIHYDRATE\MOMETASONE FUROATE
     Dosage: 200/5 MCG; INHALE 1 PUFF BY MOUTH TWICE A DAY

REACTIONS (7)
  - Device malfunction [Unknown]
  - Poor quality device used [Unknown]
  - Product use issue [Unknown]
  - Wrong technique in device usage process [Unknown]
  - Oropharyngeal pain [Unknown]
  - Exposure via skin contact [Unknown]
  - Product quality issue [Unknown]

NARRATIVE: CASE EVENT DATE: 20201201
